FAERS Safety Report 5039172-7 (Version None)
Quarter: 2006Q2

REPORT INFORMATION
  Report Type: 
  Country: None (occurrence: None)
  Receive Date: 20060623
  Receipt Date: 20060608
  Transmission Date: 20061013
  Serious: Yes (Hospitalization)
  Sender: FDA-Public Use
  Company Number: SPV1-2006-00035

PATIENT
  Age: 13 Year
  Sex: Male
  Weight: 42.6 kg

DRUGS (3)
  1. ADDERALL 15 [Suspect]
     Dosage: ORAL
     Route: 048
     Dates: start: 20060401
  2. CONCERTA [Suspect]
     Indication: ATTENTION DEFICIT/HYPERACTIVITY DISORDER
     Dosage: 18 MG DAILY, ORAL
     Route: 048
  3. ALBUTEROL /00139501/ (SALBUTAMOL) [Concomitant]

REACTIONS (1)
  - BRAIN NEOPLASM [None]
